FAERS Safety Report 7374605-2 (Version None)
Quarter: 2011Q1

REPORT INFORMATION
  Report Type: 
  Country: None (occurrence: None)
  Receive Date: 20110325
  Receipt Date: 20100429
  Transmission Date: 20110831
  Serious: No
  Sender: FDA-Public Use
  Company Number: US-MYLANLABS-2010S1007835

PATIENT
  Age: 54 Year
  Sex: Female
  Weight: 106.14 kg

DRUGS (9)
  1. SEROQUEL [Concomitant]
     Indication: DEPRESSION
  2. LISINOPRIL [Concomitant]
     Indication: BLOOD PRESSURE INCREASED
  3. SIMVASTATIN [Concomitant]
     Indication: BLOOD CHOLESTEROL INCREASED
  4. GABAPENTIN [Concomitant]
     Indication: SPINAL COLUMN STENOSIS
  5. CITALOPRAM HYDROBROMIDE [Concomitant]
     Indication: DEPRESSION
  6. LEVOXYL [Concomitant]
     Indication: HYPOTHYROIDISM
  7. OMEPRAZOLE [Concomitant]
     Indication: GASTROOESOPHAGEAL REFLUX DISEASE
  8. ATENOLOL [Concomitant]
     Indication: BLOOD PRESSURE INCREASED
  9. FENTANYL-100 [Suspect]
     Indication: BACK PAIN
     Dosage: CHANGED Q72H
     Route: 062
     Dates: start: 20100201

REACTIONS (1)
  - BURNING SENSATION [None]
